FAERS Safety Report 8415937-6 (Version None)
Quarter: 2012Q2

REPORT INFORMATION
  Report Type: 
  Country: None (occurrence: None)
  Receive Date: 20120606
  Receipt Date: 20120601
  Transmission Date: 20120825
  Serious: Yes (Death, Life-Threatening, Other)
  Sender: FDA-Public Use
  Company Number: JP-SANOFI-AVENTIS-2011SA079356

PATIENT
  Age: 71 Year
  Sex: Male
  Weight: 58 kg

DRUGS (13)
  1. ALDACTONE [Concomitant]
     Route: 048
     Dates: start: 20100501, end: 20100608
  2. CLOPIDOGREL BISULFATE [Suspect]
     Route: 065
     Dates: start: 20091217, end: 20100428
  3. ASPIRIN [Concomitant]
     Route: 048
     Dates: start: 20091217, end: 20100428
  4. IMIDAPRIL HYDROCHLORIDE [Concomitant]
     Route: 048
     Dates: start: 20091218, end: 20100423
  5. ASPIRIN [Concomitant]
     Route: 048
     Dates: start: 20091216, end: 20091216
  6. ASPIRIN [Concomitant]
     Route: 048
     Dates: start: 20100505, end: 20100608
  7. CLOPIDOGREL BISULFATE [Suspect]
     Route: 065
     Dates: start: 20091216
  8. ATORVASTATIN CALCIUM [Concomitant]
     Route: 048
     Dates: start: 20100505, end: 20100608
  9. CARVEDILOL [Concomitant]
     Route: 048
     Dates: start: 20100502, end: 20100608
  10. RABEPRAZOLE SODIUM [Concomitant]
     Indication: PROPHYLAXIS
     Route: 048
     Dates: start: 20100505, end: 20100608
  11. ATORVASTATIN CALCIUM [Concomitant]
     Route: 048
     Dates: start: 20091217, end: 20100423
  12. LASIX [Concomitant]
     Route: 048
     Dates: start: 20100501, end: 20100608
  13. OMEPRAZOLE [Concomitant]
     Route: 048
     Dates: start: 20091219, end: 20100423

REACTIONS (5)
  - ACUTE MYOCARDIAL INFARCTION [None]
  - DRUG INEFFECTIVE [None]
  - CARDIAC DEATH [None]
  - CHEST PAIN [None]
  - ATRIAL FIBRILLATION [None]
